FAERS Safety Report 9260017 (Version 3)
Quarter: 2013Q3

REPORT INFORMATION
  Report Type: Spontaneous
  Country: DE (occurrence: DE)
  Receive Date: 20130429
  Receipt Date: 20130703
  Transmission Date: 20140515
  Serious: Yes (Hospitalization)
  Sender: FDA-Public Use
  Company Number: DE-JNJFOC-20130414206

PATIENT
  Age: 75 Year
  Sex: Male
  Weight: 81 kg

DRUGS (17)
  1. XARELTO [Suspect]
     Indication: THROMBOSIS PROPHYLAXIS
     Route: 048
     Dates: start: 20130223
  2. XARELTO [Suspect]
     Indication: ATRIAL FIBRILLATION
     Route: 048
     Dates: start: 20130223
  3. XARELTO [Suspect]
     Indication: CEREBROVASCULAR ACCIDENT PROPHYLAXIS
     Route: 048
     Dates: start: 20130223
  4. ALLOPURINOL [Concomitant]
     Route: 065
  5. ASPIRIN PROTECT [Concomitant]
     Route: 065
  6. IBUPROFEN [Concomitant]
     Route: 065
  7. MAGIUM K [Concomitant]
     Route: 065
  8. MOLSIDOMIN [Concomitant]
     Route: 065
  9. NITROLINGUAL [Concomitant]
     Route: 065
  10. PENTALONG [Concomitant]
     Route: 065
  11. SIMVAHEXAL [Concomitant]
     Route: 065
  12. TAMSULOSIN [Concomitant]
     Route: 065
  13. TRIAMTEREN HCT [Concomitant]
     Route: 065
  14. DEKRISTOL [Concomitant]
     Route: 065
  15. NEBILET [Concomitant]
     Route: 065
  16. TORASEMID [Concomitant]
     Route: 065
  17. MOLSIDOMINE [Concomitant]
     Route: 065

REACTIONS (7)
  - Cholangitis [Unknown]
  - Cholecystitis [Unknown]
  - Abdominal discomfort [Unknown]
  - Abdominal pain upper [Unknown]
  - Abdominal distension [Unknown]
  - Abdominal distension [Unknown]
  - Decreased appetite [Unknown]
